FAERS Safety Report 6097549-5 (Version None)
Quarter: 2009Q1

REPORT INFORMATION
  Report Type: 
  Country: None (occurrence: None)
  Receive Date: 20090227
  Receipt Date: 20090123
  Transmission Date: 20090719
  Serious: No
  Sender: FDA-Public Use
  Company Number: A0753075A

PATIENT
  Age: 29 Year
  Sex: Female

DRUGS (8)
  1. IMITREX [Suspect]
     Indication: MIGRAINE
     Dosage: 6MG VARIABLE DOSE
     Route: 058
     Dates: start: 20080801
  2. IMITREX [Suspect]
     Route: 048
     Dates: start: 19980101, end: 19980101
  3. INDERAL [Concomitant]
  4. EFFEXOR [Concomitant]
  5. MAGNESIUM SULFATE [Concomitant]
  6. VISTARIL [Concomitant]
  7. RIBOFLAVIN TAB [Concomitant]
  8. BENADRYL [Concomitant]

REACTIONS (3)
  - ACCIDENTAL NEEDLE STICK [None]
  - DRUG INEFFECTIVE [None]
  - PRODUCT QUALITY ISSUE [None]
